FAERS Safety Report 4583149-2 (Version None)
Quarter: 2005Q1

REPORT INFORMATION
  Report Type: 
  Country: None (occurrence: None)
  Receive Date: 20050125
  Receipt Date: 20041112
  Transmission Date: 20050727
  Serious: No
  Sender: FDA-Public Use
  Company Number: USA041183982

PATIENT
  Age: 74 Year
  Sex: Female
  Weight: 59 kg

DRUGS (9)
  1. FORTEO [Suspect]
     Indication: OSTEOPOROSIS
     Dosage: 20 UG/1 DAY
     Dates: start: 20041110
  2. CALCIUM W/VITAMIN D NOS [Concomitant]
  3. LIPITOR [Concomitant]
  4. ATIVAN [Concomitant]
  5. MULTI-VITAMIN [Concomitant]
  6. OMEGA - 3 FISH OIL [Concomitant]
  7. VITAMIN D [Concomitant]
  8. VITAMIN E [Concomitant]
  9. TEMOVATE [Concomitant]

REACTIONS (2)
  - FATIGUE [None]
  - HEADACHE [None]
